FAERS Safety Report 7230362-1 (Version None)
Quarter: 2011Q1

REPORT INFORMATION
  Report Type: 
  Country: None (occurrence: None)
  Receive Date: 20110118
  Receipt Date: 20110114
  Transmission Date: 20110831
  Serious: No
  Sender: FDA-Public Use
  Company Number: US-ROXANE LABORATORIES, INC.-2011-RO-00001RO

PATIENT
  Age: 51 Year
  Sex: Female

DRUGS (1)
  1. CODEINE [Suspect]

REACTIONS (1)
  - THERAPEUTIC RESPONSE UNEXPECTED [None]
